FAERS Safety Report 5648104-X (Version None)
Quarter: 2008Q1

REPORT INFORMATION
  Report Type: 
  Country: None (occurrence: None)
  Receive Date: 20080304
  Receipt Date: 20080226
  Transmission Date: 20080703
  Serious: Yes (Hospitalization)
  Sender: FDA-Public Use
  Company Number: FR-WYE-G01132808

PATIENT
  Sex: Male

DRUGS (12)
  1. RHINADVIL [Suspect]
     Indication: PAIN
     Route: 048
     Dates: start: 20080108, end: 20080109
  2. PIVALONE [Suspect]
     Indication: RHINITIS
     Route: 045
     Dates: start: 20080108, end: 20080109
  3. POLERY [Suspect]
     Indication: COUGH
     Route: 048
     Dates: start: 20080108, end: 20080109
  4. CORTANCYL [Concomitant]
     Route: 048
  5. KETUM [Concomitant]
     Dosage: UNKNOWN
     Route: 061
  6. SPECIAFOLDINE [Concomitant]
     Route: 048
  7. OROCAL [Concomitant]
     Dosage: 2 TABLETS PER DAY
     Route: 048
  8. DAFALGAN [Concomitant]
     Dosage: 2 TO 4 G PER DAY
     Route: 048
  9. TEMESTA [Concomitant]
     Dosage: 1 MG
  10. KARDEGIC [Concomitant]
     Route: 048
  11. PYOSTACINE [Suspect]
     Indication: NASOPHARYNGITIS
     Route: 048
     Dates: start: 20080108, end: 20080109
  12. NOVATREX [Concomitant]
     Route: 048

REACTIONS (5)
  - HYPERSENSITIVITY [None]
  - PYREXIA [None]
  - RASH PRURITIC [None]
  - URTICARIA [None]
  - VOMITING [None]
